FAERS Safety Report 17758099 (Version 1)
Quarter: 2020Q2

REPORT INFORMATION
  Report Type: Spontaneous
  Country: FI (occurrence: FI)
  Receive Date: 20200507
  Receipt Date: 20200507
  Transmission Date: 20200714
  Serious: Yes (Other)
  Sender: FDA-Public Use
  Company Number: FI-JNJFOC-20200436858

PATIENT
  Age: 11 Year
  Sex: Female

DRUGS (7)
  1. ABILIFY [Concomitant]
     Active Substance: ARIPIPRAZOLE
     Indication: DELUSION
     Dosage: 5,MG,DAILY
     Route: 048
     Dates: start: 20200402, end: 20200406
  2. ATARAX [Concomitant]
     Active Substance: HYDROXYZINE HYDROCHLORIDE
     Route: 048
     Dates: start: 20200219, end: 20200401
  3. NASONEX [Concomitant]
     Active Substance: MOMETASONE FUROATE
     Indication: NASAL CONGESTION
     Dosage: 100,UG,DAILY
     Route: 045
  4. SERENASE (HALOPERIDOL) [Suspect]
     Active Substance: HALOPERIDOL
     Indication: DELUSION
     Dosage: 7,MG,TOTAL
     Route: 030
     Dates: start: 20200404, end: 20200405
  5. SERONIL [Concomitant]
     Active Substance: FLUOXETINE HYDROCHLORIDE
     Indication: ANXIETY
     Dosage: 10,MG,DAILY
     Route: 048
     Dates: start: 20200217, end: 20200401
  6. ATIVAN [Concomitant]
     Active Substance: LORAZEPAM
     Indication: ANXIETY
     Dosage: ,,AS NECESSARY
     Route: 030
     Dates: start: 20200402
  7. TEMESTA                            /00273201/ [Concomitant]
     Active Substance: LORAZEPAM
     Indication: ANXIETY
     Dosage: 2,MG,DAILY
     Route: 048
     Dates: start: 20200401

REACTIONS (13)
  - Posture abnormal [Unknown]
  - Extrapyramidal disorder [Unknown]
  - Gait disturbance [Unknown]
  - Product use issue [Unknown]
  - Hyporesponsive to stimuli [Unknown]
  - Stiff tongue [Unknown]
  - Paraesthesia oral [Unknown]
  - Dysarthria [Unknown]
  - Muscular weakness [Unknown]
  - Facial paralysis [Unknown]
  - Akinesia [Unknown]
  - Dyspnoea [Unknown]
  - Off label use [Unknown]

NARRATIVE: CASE EVENT DATE: 20200404
